FAERS Safety Report 8033651-6 (Version None)
Quarter: 2012Q1

REPORT INFORMATION
  Report Type: 
  Country: None (occurrence: None)
  Receive Date: 20120110
  Receipt Date: 20120106
  Transmission Date: 20120608
  Serious: Yes (Hospitalization)
  Sender: FDA-Public Use
  Company Number: US-BAYER-2011-111691

PATIENT
  Age: 74 Year
  Sex: Male

DRUGS (2)
  1. COUMADIN [Concomitant]
  2. SORAFENIB (RAF KINASE INHIBITOR) [Suspect]
     Indication: HEPATIC NEOPLASM MALIGNANT
     Dosage: 400 MG, BID
     Dates: start: 20111112, end: 20111230

REACTIONS (9)
  - GASTROINTESTINAL DISORDER [None]
  - RENAL FAILURE [None]
  - PAIN [None]
  - DIARRHOEA [None]
  - FLUID OVERLOAD [None]
  - COUGH [None]
  - CARDIAC DISORDER [None]
  - ASTHENIA [None]
  - FATIGUE [None]
